FAERS Safety Report 10394086 (Version 1)
Quarter: 2014Q3

REPORT INFORMATION
  Report Type: Spontaneous
  Country: DK (occurrence: FR)
  Receive Date: 20140819
  Receipt Date: 20140819
  Transmission Date: 20150326
  Serious: Yes (Hospitalization)
  Sender: FDA-Public Use
  Company Number: FR-FRI-1000069958

PATIENT
  Age: 57 Year
  Sex: Female

DRUGS (7)
  1. ALPRAZOLAM. [Suspect]
     Active Substance: ALPRAZOLAM
     Dosage: 0.75 MG
     Route: 048
  2. ZOPICLONE [Suspect]
     Active Substance: ZOPICLONE
     Dosage: OVERDOSE NOS.
     Route: 048
     Dates: start: 20140412, end: 20140412
  3. ESCITALOPRAM [Suspect]
     Active Substance: ESCITALOPRAM OXALATE
     Dosage: OVERDOSE NOS.
     Route: 048
     Dates: start: 20140412, end: 20140412
  4. ZOPICLONE [Suspect]
     Active Substance: ZOPICLONE
     Dosage: 1 DF
     Route: 048
  5. TERCIAN [Concomitant]
     Active Substance: CYAMEMAZINE
  6. ESCITALOPRAM [Suspect]
     Active Substance: ESCITALOPRAM OXALATE
     Dosage: 20 MG
     Route: 048
  7. ALPRAZOLAM. [Suspect]
     Active Substance: ALPRAZOLAM
     Dosage: OVERDOSE NOS.
     Route: 048
     Dates: start: 20140412, end: 20140412

REACTIONS (3)
  - Pneumonia aspiration [Recovered/Resolved]
  - Intentional overdose [Recovered/Resolved]
  - Coma [Recovered/Resolved]

NARRATIVE: CASE EVENT DATE: 20140412
